FAERS Safety Report 7596821-7 (Version None)
Quarter: 2011Q3

REPORT INFORMATION
  Report Type: 
  Country: None (occurrence: None)
  Receive Date: 20110708
  Receipt Date: 20110624
  Transmission Date: 20111222
  Serious: Yes (Life-Threatening)
  Sender: FDA-Public Use
  Company Number: GB-MYLANLABS-2011S1013249

PATIENT
  Age: 74 Year
  Sex: Female

DRUGS (2)
  1. FENTANYL [Interacting]
     Indication: PAIN
     Route: 062
  2. CLARITHROMYCIN [Suspect]
     Indication: RESPIRATORY TRACT INFECTION
     Route: 048
     Dates: start: 20110608, end: 20110613

REACTIONS (4)
  - RESPIRATORY FAILURE [None]
  - SOMNOLENCE [None]
  - RESPIRATORY ARREST [None]
  - DRUG INTERACTION [None]
